FAERS Safety Report 14470407 (Version 3)
Quarter: 2018Q2

REPORT INFORMATION
  Report Type: Spontaneous
  Country: JP (occurrence: JP)
  Receive Date: 20180131
  Receipt Date: 20180403
  Transmission Date: 20180711
  Serious: Yes (Other)
  Sender: FDA-Public Use
  Company Number: JP-SA-2018SA023873

PATIENT
  Age: 23 Year
  Sex: Female
  Weight: 39 kg

DRUGS (10)
  1. CRAVIT [Suspect]
     Active Substance: LEVOFLOXACIN
     Indication: TUBERCULOSIS
     Route: 065
  2. RIFADIN [Suspect]
     Active Substance: RIFAMPIN
     Indication: TUBERCULOSIS
     Route: 048
     Dates: start: 20160303, end: 20160915
  3. ISCOTIN [Suspect]
     Active Substance: ISONIAZID
     Indication: TUBERCULOSIS
     Route: 042
     Dates: start: 20160303, end: 20160915
  4. ISCOTIN [Suspect]
     Active Substance: ISONIAZID
     Indication: TUBERCULOSIS
     Route: 065
  5. CRAVIT [Suspect]
     Active Substance: LEVOFLOXACIN
     Indication: TUBERCULOSIS
     Route: 065
  6. PYRAMIDE [Suspect]
     Active Substance: PYRAZINAMIDE
     Indication: TUBERCULOSIS
     Route: 065
  7. STREPTOMYCIN [Concomitant]
     Active Substance: STREPTOMYCIN\STREPTOMYCIN SULFATE
     Route: 065
  8. CRAVIT [Suspect]
     Active Substance: LEVOFLOXACIN
     Indication: TUBERCULOSIS
     Route: 042
     Dates: start: 20160303, end: 20170131
  9. PREDNISOLONE. [Concomitant]
     Active Substance: PREDNISOLONE
     Route: 065
  10. ETHAMBUTOL [Concomitant]
     Active Substance: ETHAMBUTOL HYDROCHLORIDE
     Route: 065

REACTIONS (5)
  - Pericarditis tuberculous [Recovered/Resolved]
  - Cardiac tamponade [Recovered/Resolved]
  - Hepatic function abnormal [Recovered/Resolved]
  - Septic shock [Recovered/Resolved]
  - Pneumonia [Recovered/Resolved]

NARRATIVE: CASE EVENT DATE: 20160915
